FAERS Safety Report 19483317 (Version 3)
Quarter: 2021Q3

REPORT INFORMATION
  Report Type: Report from Study
  Country: US (occurrence: US)
  Receive Date: 20210701
  Receipt Date: 20210929
  Transmission Date: 20211014
  Serious: Yes (Other)
  Sender: FDA-Public Use
  Company Number: US-SHIRE-US202021992

PATIENT
  Sex: Female

DRUGS (1)
  1. CUVITRU [Suspect]
     Active Substance: HUMAN IMMUNOGLOBULIN G
     Indication: PRIMARY IMMUNODEFICIENCY SYNDROME
     Route: 065

REACTIONS (8)
  - Suspected COVID-19 [Unknown]
  - Disability [Unknown]
  - Pain [Unknown]
  - Bipolar disorder [Unknown]
  - Mental disorder [Unknown]
  - Fatigue [Unknown]
  - Anxiety [Unknown]
  - Illness [Unknown]
